FAERS Safety Report 4370832-7 (Version None)
Quarter: 2004Q2

REPORT INFORMATION
  Report Type: 
  Country: None (occurrence: None)
  Receive Date: 20040526
  Receipt Date: 20040518
  Transmission Date: 20050107
  Serious: Yes (Hospitalization)
  Sender: FDA-Public Use
  Company Number: WAES 0310USA00866

PATIENT
  Age: 78 Year
  Sex: Female

DRUGS (2)
  1. ZOCOR [Suspect]
     Indication: HYPERLIPIDAEMIA
     Dosage: 5 MG/DAILY PO
     Route: 048
     Dates: start: 19930329
  2. UBIDECARENONE [Concomitant]

REACTIONS (3)
  - ANAEMIA [None]
  - COLON CANCER [None]
  - FAECAL OCCULT BLOOD POSITIVE [None]
